FAERS Safety Report 9691079 (Version 2)
Quarter: 2013Q4

REPORT INFORMATION
  Report Type: Report from Study
  Country: US (occurrence: US)
  Receive Date: 20131115
  Receipt Date: 20131129
  Transmission Date: 20140711
  Serious: Yes (Hospitalization)
  Sender: FDA-Public Use
  Company Number: US-ACTELION-A-CH2013-91061

PATIENT
  Age: 65 Year
  Sex: Male
  Weight: 90.25 kg

DRUGS (11)
  1. MACITENTAN [Suspect]
     Indication: PULMONARY ARTERIAL HYPERTENSION
     Dosage: 10 MG, QD
     Route: 048
     Dates: start: 20131010, end: 20131106
  2. AMLODIPINE [Concomitant]
     Dosage: UNK
     Dates: start: 20101026
  3. ASPIRIN [Concomitant]
     Dosage: UNK
     Dates: start: 20101130
  4. CLOPIDOGREL [Concomitant]
     Dosage: UNK
     Dates: start: 201012
  5. DOXYLAMINE [Concomitant]
     Dosage: UNK
     Dates: start: 2010
  6. FUROSEMIDE [Concomitant]
     Dosage: UNK
     Dates: start: 20120917
  7. IBUPROFEN [Concomitant]
     Dosage: UNK
     Dates: start: 2008
  8. MEXILETINE [Concomitant]
     Dosage: UNK
     Dates: start: 201212
  9. PROTONIX [Concomitant]
     Dosage: UNK
     Dates: start: 20130725
  10. RANOLAZINE [Concomitant]
     Dosage: UNK
     Dates: start: 20130319
  11. TADALAFIL [Concomitant]
     Dosage: UNK
     Dates: start: 20120210

REACTIONS (7)
  - Small intestinal obstruction [Not Recovered/Not Resolved]
  - Umbilical hernia [Recovering/Resolving]
  - Overgrowth bacterial [Unknown]
  - Nausea [Not Recovered/Not Resolved]
  - Diarrhoea [Not Recovered/Not Resolved]
  - Vomiting [Not Recovered/Not Resolved]
  - Chills [Not Recovered/Not Resolved]
